FAERS Safety Report 8914905 (Version 2)
Quarter: 2012Q4

REPORT INFORMATION
  Report Type: Report from Study
  Country: IT (occurrence: IT)
  Receive Date: 20121119
  Receipt Date: 20121123
  Transmission Date: 20130627
  Serious: Yes (Disabling)
  Sender: FDA-Public Use
  Company Number: IT-ROCHE-1156575

PATIENT
  Age: 62 Year
  Sex: Female

DRUGS (2)
  1. BEVACIZUMAB [Suspect]
     Indication: BREAST CANCER
     Route: 042
     Dates: start: 20120530, end: 20120829
  2. TAXOL [Concomitant]
     Dosage: reported as TAXOLO
     Route: 042
     Dates: start: 20120530, end: 20120829

REACTIONS (1)
  - Visual acuity reduced [Recovered/Resolved with Sequelae]
